FAERS Safety Report 10409406 (Version 5)
Quarter: 2015Q4

REPORT INFORMATION
  Report Type: Report from Study
  Country: SE (occurrence: SE)
  Receive Date: 20140826
  Receipt Date: 20151209
  Transmission Date: 20160304
  Serious: Yes (Hospitalization)
  Sender: FDA-Public Use
  Company Number: SE-SA-2014SA114413

PATIENT
  Age: 41 Year
  Sex: Female
  Weight: 78 kg

DRUGS (4)
  1. LOSARTAN. [Concomitant]
     Active Substance: LOSARTAN
     Route: 048
     Dates: start: 20140523
  2. TERIFLUNOMIDE [Suspect]
     Active Substance: TERIFLUNOMIDE
     Indication: MULTIPLE SCLEROSIS RELAPSE
     Route: 048
     Dates: start: 20140520
  3. OMEPRAZOLE. [Concomitant]
     Active Substance: OMEPRAZOLE
     Route: 048
     Dates: start: 2007
  4. PANODIL [Concomitant]
     Active Substance: ACETAMINOPHEN
     Route: 048
     Dates: start: 2009

REACTIONS (1)
  - Diverticulitis [Recovered/Resolved]

NARRATIVE: CASE EVENT DATE: 20140729
